FAERS Safety Report 26041654 (Version 1)
Quarter: 2025Q4

REPORT INFORMATION
  Report Type: Report from Study
  Country: US (occurrence: US)
  Receive Date: 20251113
  Receipt Date: 20251113
  Transmission Date: 20260117
  Serious: Yes (Other)
  Sender: ABBVIE
  Company Number: US-ABBVIE-6538936

PATIENT
  Age: 45 Year
  Sex: Male

DRUGS (1)
  1. RINVOQ [Suspect]
     Active Substance: UPADACITINIB
     Indication: Colitis ulcerative
     Route: 048
     Dates: start: 20251001, end: 20251030

REACTIONS (6)
  - Surgery [Unknown]
  - Abdominal pain [Recovering/Resolving]
  - Megacolon [Unknown]
  - Gastrointestinal disorder [Unknown]
  - Inflammatory marker increased [Unknown]
  - Faecaloma [Unknown]

NARRATIVE: CASE EVENT DATE: 20250101
